FAERS Safety Report 6259669-1 (Version None)
Quarter: 2009Q3

REPORT INFORMATION
  Report Type: 
  Country: None (occurrence: None)
  Receive Date: 20090701
  Receipt Date: 20090625
  Transmission Date: 20100115
  Serious: Yes (Hospitalization, Other)
  Sender: FDA-Public Use
  Company Number: CHNY2009GB02590

PATIENT
  Sex: Female

DRUGS (1)
  1. HYOSCINE HBR HYT [Suspect]
     Indication: SALIVARY HYPERSECRETION
     Dosage: 1 DF, Q72H, TRANSDERMAL, USING PART PATCHES, TRANSDERMAL
     Route: 062

REACTIONS (10)
  - ABNORMAL BEHAVIOUR [None]
  - DRY MOUTH [None]
  - MICTURITION DISORDER [None]
  - OFF LABEL USE [None]
  - PNEUMONIA ASPIRATION [None]
  - RESTLESSNESS [None]
  - THERAPEUTIC RESPONSE UNEXPECTED [None]
  - VOMITING [None]
  - WITHDRAWAL SYNDROME [None]
  - WRONG TECHNIQUE IN DRUG USAGE PROCESS [None]
